FAERS Safety Report 10120793 (Version 1)
Quarter: 2014Q2

REPORT INFORMATION
  Report Type: Spontaneous
  Country: US (occurrence: US)
  Receive Date: 20140425
  Receipt Date: 20140425
  Transmission Date: 20141212
  Serious: Yes (Other)
  Sender: FDA-Public Use
  Company Number: US-BRISTOL-MYERS SQUIBB COMPANY-20643425

PATIENT
  Sex: Female

DRUGS (2)
  1. ABILIFY TABS [Suspect]
     Indication: SCHIZOPHRENIA
  2. WELLBUTRIN [Suspect]
     Indication: SCHIZOPHRENIA

REACTIONS (2)
  - Peripheral swelling [Unknown]
  - Psychotic disorder [Unknown]
